FAERS Safety Report 8338251-6 (Version None)
Quarter: 2012Q2

REPORT INFORMATION
  Report Type: 
  Country: None (occurrence: None)
  Receive Date: 20120504
  Receipt Date: 20120425
  Transmission Date: 20120825
  Serious: Yes (Hospitalization, Disabling)
  Sender: FDA-Public Use
  Company Number: US-MERCK-1203USA03344

PATIENT
  Age: 55 Year
  Sex: Female
  Weight: 61 kg

DRUGS (5)
  1. FOSAMAX [Suspect]
     Route: 048
     Dates: start: 20021201, end: 20080201
  2. FOSAMAX PLUS D [Suspect]
     Route: 048
  3. FOSAMAX [Suspect]
     Indication: OSTEOPENIA
     Route: 048
     Dates: start: 19971101, end: 20001201
  4. FOSAMAX [Suspect]
     Indication: OSTEOPOROSIS
     Route: 048
     Dates: start: 19971101, end: 20001201
  5. FOSAMAX [Suspect]
     Route: 048
     Dates: start: 20021201, end: 20080201

REACTIONS (21)
  - OSTEOPOROSIS [None]
  - PEPTIC ULCER [None]
  - HOT FLUSH [None]
  - HEADACHE [None]
  - HYPERTENSION [None]
  - IMPAIRED HEALING [None]
  - HAEMATOCHEZIA [None]
  - STRESS FRACTURE [None]
  - MIGRAINE [None]
  - DEPRESSION [None]
  - FEMUR FRACTURE [None]
  - COUGH [None]
  - ASTHENIA [None]
  - POSTMENOPAUSAL HAEMORRHAGE [None]
  - PAIN [None]
  - DIVERTICULUM [None]
  - MUSCULOSKELETAL DISCOMFORT [None]
  - ANAEMIA POSTOPERATIVE [None]
  - DYSPEPSIA [None]
  - TONSILLAR DISORDER [None]
  - BONE DENSITY DECREASED [None]
